APPROVED DRUG PRODUCT: PREGABALIN
Active Ingredient: PREGABALIN
Strength: 50MG
Dosage Form/Route: CAPSULE;ORAL
Application: A216197 | Product #002 | TE Code: AB
Applicant: ADAPTIS PHARMA PRIVATE LTD
Approved: Jul 18, 2022 | RLD: No | RS: No | Type: RX